FAERS Safety Report 9710809 (Version 2)
Quarter: 2013Q4

REPORT INFORMATION
  Report Type: Spontaneous
  Country: US (occurrence: US)
  Receive Date: 20131126
  Receipt Date: 20131126
  Transmission Date: 20140711
  Serious: No
  Sender: FDA-Public Use
  Company Number: US-BRISTOL-MYERS SQUIBB COMPANY-19018910

PATIENT
  Age: 33 Year
  Sex: Female

DRUGS (1)
  1. BYETTA PEN DISPOSABLE [Suspect]
     Indication: TYPE 2 DIABETES MELLITUS
     Dosage: ON APR13 TAKEN 10MCG?LOT#C073989A ,NOV14
     Route: 058
     Dates: start: 201301

REACTIONS (7)
  - Nausea [Not Recovered/Not Resolved]
  - Injection site bruising [Unknown]
  - Vomiting [Unknown]
  - Product quality issue [Unknown]
  - Blood glucose increased [Unknown]
  - Injection site haemorrhage [Unknown]
  - Injection site extravasation [Unknown]
